FAERS Safety Report 5320927-6 (Version None)
Quarter: 2007Q2

REPORT INFORMATION
  Report Type: 
  Country: None (occurrence: None)
  Receive Date: 20070504
  Receipt Date: 20070420
  Transmission Date: 20071010
  Serious: Yes (Hospitalization, Other)
  Sender: FDA-Public Use
  Company Number: 2007000502

PATIENT
  Sex: Female

DRUGS (1)
  1. MACUGEN [Suspect]
     Indication: MACULAR DEGENERATION
     Dosage: INTRA-VITREAL

REACTIONS (2)
  - BRADYCARDIA [None]
  - CARDIAC DISORDER [None]
